FAERS Safety Report 8050448-1 (Version None)
Quarter: 2012Q1

REPORT INFORMATION
  Report Type: 
  Country: None (occurrence: None)
  Receive Date: 20120111
  Receipt Date: 20110428
  Transmission Date: 20120608
  Serious: No
  Sender: FDA-Public Use
  Company Number: AEUSA201100112

PATIENT

DRUGS (1)
  1. PLASBUMIN 25% (25 PCT) [Suspect]
     Indication: PRODUCT USED FOR UNKNOWN INDICATION
     Dosage: IV
     Route: 042

REACTIONS (1)
  - CHORIOMENINGITIS LYMPHOCYTIC [None]
